FAERS Safety Report 18974929 (Version 1)
Quarter: 2021Q1

REPORT INFORMATION
  Report Type: Spontaneous
  Country: AU (occurrence: AU)
  Receive Date: 20210305
  Receipt Date: 20210305
  Transmission Date: 20210420
  Serious: Yes (Death, Other)
  Sender: FDA-Public Use
  Company Number: AU-ALLERGAN-2107706US

PATIENT
  Sex: Female

DRUGS (1)
  1. COMBIGAN [Suspect]
     Active Substance: BRIMONIDINE TARTRATE\TIMOLOL MALEATE
     Indication: INTRAOCULAR PRESSURE INCREASED
     Dosage: UNK UNK, BID

REACTIONS (10)
  - Intraocular pressure increased [Fatal]
  - Serous retinal detachment [Fatal]
  - Acute myeloid leukaemia [Fatal]
  - Scleral disorder [Recovering/Resolving]
  - Conjunctival oedema [Unknown]
  - Neurotrophic keratopathy [Fatal]
  - Respiratory failure [Fatal]
  - Visual acuity reduced [Unknown]
  - Angle closure glaucoma [Fatal]
  - Subretinal fluid [Unknown]
